FAERS Safety Report 8118262-6 (Version None)
Quarter: 2012Q1

REPORT INFORMATION
  Report Type: 
  Country: None (occurrence: None)
  Receive Date: 20120201
  Receipt Date: 20120123
  Transmission Date: 20120608
  Serious: Yes (Hospitalization)
  Sender: FDA-Public Use
  Company Number: AUR-APL-2012-00656

PATIENT
  Sex: Male

DRUGS (1)
  1. CITALOPRAM HYDROBROMIDE [Suspect]
     Indication: DEPRESSION
     Dosage: (40 MG, 1 D), TRANSPLACENTAL
     Route: 064

REACTIONS (9)
  - BLOOD GLUCOSE DECREASED [None]
  - GRUNTING [None]
  - HEART RATE INCREASED [None]
  - TREMOR [None]
  - HYPERTONIA [None]
  - NASAL FLARING [None]
  - FEELING JITTERY [None]
  - NEONATAL RESPIRATORY DISTRESS SYNDROME [None]
  - MATERNAL DRUGS AFFECTING FOETUS [None]
